FAERS Safety Report 9046958 (Version 1)
Quarter: 2013Q1

REPORT INFORMATION
  Report Type: Spontaneous
  Country: US (occurrence: None)
  Receive Date: 20130129
  Receipt Date: 20130129
  Transmission Date: 20140127
  Serious: Yes (Disabling)
  Sender: FDA-Public Use
  Company Number: None

PATIENT
  Age: 74 Year
  Sex: Female
  Weight: 58.97 kg

DRUGS (1)
  1. PERTUZIMAB [Suspect]
     Indication: BREAST CANCER STAGE IV
     Dates: start: 20121220, end: 20130121

REACTIONS (7)
  - Rash [None]
  - Stomatitis [None]
  - Epistaxis [None]
  - Anorectal discomfort [None]
  - Vulvovaginal discomfort [None]
  - Skin exfoliation [None]
  - Local swelling [None]
